FAERS Safety Report 21795419 (Version 2)
Quarter: 2023Q1

REPORT INFORMATION
  Report Type: Spontaneous
  Country: CN (occurrence: CN)
  Receive Date: 20221229
  Receipt Date: 20230111
  Transmission Date: 20230417
  Serious: Yes (Hospitalization)
  Sender: FDA-Public Use
  Company Number: CN-TEVA-2022-CN-2840412

PATIENT
  Age: 11 Year
  Sex: Male

DRUGS (9)
  1. LAMOTRIGINE [Suspect]
     Active Substance: LAMOTRIGINE
     Indication: Epilepsy
     Dosage: 200 MILLIGRAM DAILY; TWICE A DAY
     Route: 048
  2. LAMOTRIGINE [Suspect]
     Active Substance: LAMOTRIGINE
     Dosage: 300 MILLIGRAM DAILY; TWICE A DAY
     Route: 048
     Dates: start: 2021
  3. LEVETIRACETAM [Suspect]
     Active Substance: LEVETIRACETAM
     Indication: Epilepsy
     Dosage: 1 GRAM DAILY; TWICE A DAY
     Route: 048
  4. ZONISAMIDE [Suspect]
     Active Substance: ZONISAMIDE
     Indication: Epilepsy
     Dosage: 100 MILLIGRAM DAILY; TWICE A DAY
     Route: 048
  5. TOPIRAMATE [Suspect]
     Active Substance: TOPIRAMATE
     Indication: Epilepsy
     Dosage: 100 MILLIGRAM DAILY; TWICE A DAY
     Route: 048
  6. CLONAZEPAM [Suspect]
     Active Substance: CLONAZEPAM
     Indication: Epilepsy
     Dosage: 1 MILLIGRAM DAILY; TWICE A DAY
     Route: 048
  7. CEFTRIAXONE [Concomitant]
     Active Substance: CEFTRIAXONE
     Indication: Pneumonia
     Dosage: 1.7 GRAM DAILY; DRIP
     Route: 042
     Dates: start: 2021
  8. AZITHROMYCIN [Concomitant]
     Active Substance: AZITHROMYCIN
     Indication: Pneumonia
     Dosage: .3 GRAM DAILY;
     Route: 048
     Dates: start: 2021
  9. PERAMPANEL [Concomitant]
     Active Substance: PERAMPANEL
     Indication: Epilepsy
     Dosage: 2 MILLIGRAM DAILY;
     Route: 048
     Dates: start: 2021

REACTIONS (2)
  - Priapism [Recovered/Resolved]
  - Drug ineffective [Unknown]
